FAERS Safety Report 5763006-6 (Version None)
Quarter: 2008Q2

REPORT INFORMATION
  Report Type: 
  Country: None (occurrence: None)
  Receive Date: 20080609
  Receipt Date: 20080528
  Transmission Date: 20081010
  Serious: Yes (Death, Life-Threatening, Hospitalization, Other)
  Sender: FDA-Public Use
  Company Number: AU-PFIZER INC-2006073183

PATIENT
  Sex: Female
  Weight: 55.3 kg

DRUGS (5)
  1. SUTENT [Suspect]
     Indication: RENAL CELL CARCINOMA
     Route: 048
     Dates: start: 20060403, end: 20060603
  2. OXYNORM [Concomitant]
     Route: 048
     Dates: start: 20031001, end: 20060516
  3. METOCLOPRAMIDE [Concomitant]
     Route: 048
     Dates: start: 20060411, end: 20060516
  4. TRAMADOL HCL [Concomitant]
     Route: 048
     Dates: start: 20051001, end: 20060516
  5. ACETAMINOPHEN [Concomitant]
     Route: 048
     Dates: start: 20060516, end: 20060516

REACTIONS (10)
  - DEPRESSED LEVEL OF CONSCIOUSNESS [None]
  - DISEASE PROGRESSION [None]
  - DISSEMINATED INTRAVASCULAR COAGULATION [None]
  - LIVER DISORDER [None]
  - MELAENA [None]
  - METABOLIC ACIDOSIS [None]
  - RENAL CELL CARCINOMA [None]
  - SEPSIS [None]
  - THROMBOCYTOPENIA [None]
  - THYROTOXIC CRISIS [None]
